FAERS Safety Report 8286959-3 (Version None)
Quarter: 2012Q2

REPORT INFORMATION
  Report Type: 
  Country: None (occurrence: None)
  Receive Date: 20120416
  Receipt Date: 20120411
  Transmission Date: 20120825
  Serious: Yes (Other)
  Sender: FDA-Public Use
  Company Number: US-PFIZER INC-2012091536

PATIENT
  Sex: Female

DRUGS (2)
  1. VILAZODONE [Suspect]
     Dosage: UNK
     Route: 048
  2. GEODON [Suspect]
     Dosage: UNK

REACTIONS (2)
  - DYSKINESIA [None]
  - MUSCLE SPASMS [None]
